FAERS Safety Report 24268319 (Version 2)
Quarter: 2024Q3

REPORT INFORMATION
  Report Type: Spontaneous
  Country: US (occurrence: US)
  Receive Date: 20240830
  Receipt Date: 20240925
  Transmission Date: 20241017
  Serious: No
  Sender: PFIZER
  Company Number: US-PFIZER INC-202400245875

PATIENT
  Age: 61 Year
  Sex: Female
  Weight: 61.224 kg

DRUGS (1)
  1. PAXLOVID [Suspect]
     Active Substance: NIRMATRELVIR\RITONAVIR
     Indication: COVID-19 treatment
     Dosage: [NIRMATRELVIR 300 MG]/[RITONAVIR 100 MG]; 2X/DAY
     Route: 048
     Dates: start: 20240820, end: 20240824

REACTIONS (7)
  - Chills [Recovered/Resolved]
  - Myalgia [Recovered/Resolved]
  - Neck pain [Recovered/Resolved]
  - Rhinorrhoea [Not Recovered/Not Resolved]
  - Cough [Recovering/Resolving]
  - Pyrexia [Recovered/Resolved]
  - Lymphadenopathy [Recovered/Resolved]

NARRATIVE: CASE EVENT DATE: 20240827
